FAERS Safety Report 5026964-3 (Version None)
Quarter: 2006Q2

REPORT INFORMATION
  Report Type: 
  Country: None (occurrence: None)
  Receive Date: 20060609
  Receipt Date: 20060531
  Transmission Date: 20061013
  Serious: Yes (Life-Threatening, Hospitalization)
  Sender: FDA-Public Use
  Company Number: 2006-05-2278

PATIENT
  Age: 69 Year
  Sex: Female

DRUGS (2)
  1. TEMODAL [Suspect]
     Indication: OLIGODENDROGLIOMA
     Dosage: ORAL
     Route: 048
     Dates: end: 20060506
  2. RADIATION THERAPY NO DOSE FORM [Suspect]
     Indication: OLIGODENDROGLIOMA
     Dosage: X-RAY THERAPY

REACTIONS (2)
  - HAEMATOTOXICITY [None]
  - PANCYTOPENIA [None]
